FAERS Safety Report 6665862-6 (Version None)
Quarter: 2010Q2

REPORT INFORMATION
  Report Type: 
  Country: None (occurrence: None)
  Receive Date: 20100402
  Receipt Date: 20100322
  Transmission Date: 20101027
  Serious: Yes (Life-Threatening, Other)
  Sender: FDA-Public Use
  Company Number: IT-PFIZER INC-2010021774

PATIENT
  Age: 70 Year
  Sex: Female

DRUGS (3)
  1. SALAZOPYRIN [Suspect]
     Indication: SERONEGATIVE ARTHRITIS
     Dosage: 1 TABLET DAILY
     Dates: start: 20091215, end: 20100120
  2. TACHIPIRINA [Concomitant]
     Indication: PYREXIA
     Dosage: 3 TABLETS DAILY
     Route: 048
     Dates: start: 20100130, end: 20100131
  3. ZOPRANOL [Concomitant]
     Dosage: 0.5 UNITS
     Route: 048

REACTIONS (3)
  - BOUTONNEUSE FEVER [None]
  - DRUG RASH WITH EOSINOPHILIA AND SYSTEMIC SYMPTOMS [None]
  - HEPATITIS FULMINANT [None]
